FAERS Safety Report 4269779-6 (Version None)
Quarter: 2004Q1

REPORT INFORMATION
  Report Type: 
  Country: None (occurrence: None)
  Receive Date: 20040113
  Receipt Date: 20040108
  Transmission Date: 20041129
  Serious: Yes (Other)
  Sender: FDA-Public Use
  Company Number: WAES 0401USA00630

PATIENT
  Sex: Male
  Weight: 51 kg

DRUGS (1)
  1. STROMECTOL [Suspect]
     Route: 048
     Dates: start: 20030629, end: 20030629

REACTIONS (4)
  - COMA [None]
  - PERIPHERAL COLDNESS [None]
  - PRURITUS [None]
  - PYREXIA [None]
